FAERS Safety Report 6646430-9 (Version None)
Quarter: 2010Q1

REPORT INFORMATION
  Report Type: 
  Country: None (occurrence: None)
  Receive Date: 20100322
  Receipt Date: 20100322
  Transmission Date: 20100710
  Serious: Yes (Other)
  Sender: FDA-Public Use
  Company Number: None

PATIENT
  Sex: Female
  Weight: 62.5964 kg

DRUGS (3)
  1. ZYVOX [Suspect]
     Indication: URINARY TRACT INFECTION
     Dosage: 1 TABLET TWICE A DAY
     Dates: start: 20100202, end: 20100207
  2. ZYVOX [Suspect]
     Indication: URINARY TRACT INFECTION
     Dosage: 1 TABLET TWICE A DAY
     Dates: start: 20100208, end: 20100213
  3. ZYVOX [Suspect]

REACTIONS (1)
  - ORAL DISCOMFORT [None]
